FAERS Safety Report 7586887-2 (Version None)
Quarter: 2011Q3

REPORT INFORMATION
  Report Type: 
  Country: None (occurrence: None)
  Receive Date: 20110701
  Receipt Date: 20110628
  Transmission Date: 20111222
  Serious: No
  Sender: FDA-Public Use
  Company Number: US-TEVA-288724USA

PATIENT
  Sex: Female
  Weight: 55.842 kg

DRUGS (2)
  1. PLAN B ONE-STEP [Suspect]
     Indication: POST COITAL CONTRACEPTION
     Dosage: 1.5 MILLIGRAM;
     Route: 048
     Dates: start: 20110622, end: 20110622
  2. LIALDA [Concomitant]
     Indication: COLITIS ULCERATIVE

REACTIONS (1)
  - MENSTRUATION IRREGULAR [None]
